FAERS Safety Report 14133261 (Version 1)
Quarter: 2017Q4

REPORT INFORMATION
  Report Type: Spontaneous
  Country: US (occurrence: US)
  Receive Date: 20171026
  Receipt Date: 20171026
  Transmission Date: 20180321
  Serious: No
  Sender: FDA-Public Use
  Company Number: US-ACTELION-A-NJ2017-161530

PATIENT
  Age: 70 Year
  Sex: Female

DRUGS (11)
  1. LEVOFLOXACIN. [Concomitant]
     Active Substance: LEVOFLOXACIN
  2. OPSUMIT [Suspect]
     Active Substance: MACITENTAN
     Indication: PULMONARY HYPERTENSION
     Dosage: 10 MG, UNK
     Route: 048
     Dates: start: 20170925
  3. PREDNISONE. [Concomitant]
     Active Substance: PREDNISONE
  4. DICYCLOMINE [Concomitant]
     Active Substance: DICYCLOMINE HYDROCHLORIDE
     Dosage: 10 MG, UNK
  5. BUMETANIDE. [Concomitant]
     Active Substance: BUMETANIDE
  6. CEFDINIR. [Concomitant]
     Active Substance: CEFDINIR
  7. ALLOPURINOL. [Concomitant]
     Active Substance: ALLOPURINOL
  8. PILOCARPINE. [Concomitant]
     Active Substance: PILOCARPINE
  9. IRON [Concomitant]
     Active Substance: IRON
  10. UPTRAVI [Concomitant]
     Active Substance: SELEXIPAG
     Dosage: 800 UNK, UNK
     Route: 048
  11. OMEPRAZOLE. [Concomitant]
     Active Substance: OMEPRAZOLE

REACTIONS (1)
  - Somnolence [Recovered/Resolved]
